FAERS Safety Report 9022056 (Version 1)
Quarter: 2013Q1

REPORT INFORMATION
  Report Type: Report from Study
  Country: US (occurrence: US)
  Receive Date: 20130118
  Receipt Date: 20130118
  Transmission Date: 20140127
  Serious: Yes (Life-Threatening, Hospitalization)
  Sender: FDA-Public Use
  Company Number: US-US-EMD SERONO, INC.-7187517

PATIENT
  Sex: Male

DRUGS (4)
  1. EGRIFTA [Suspect]
     Indication: LIPODYSTROPHY ACQUIRED
     Route: 058
  2. EGRIFTA [Suspect]
     Route: 058
     Dates: start: 201209, end: 201210
  3. VICODIN [Suspect]
     Indication: CARPAL TUNNEL SYNDROME
     Dates: start: 201210
  4. TESTOSTERONE [Concomitant]
     Indication: PRODUCT USED FOR UNKNOWN INDICATION

REACTIONS (7)
  - Analgesic drug level above therapeutic [Recovering/Resolving]
  - Renal failure [Recovering/Resolving]
  - Septic shock [Recovering/Resolving]
  - Coma [Recovering/Resolving]
  - Myocardial infarction [Recovering/Resolving]
  - Pneumonia [Recovered/Resolved]
  - Upper respiratory tract infection [Not Recovered/Not Resolved]
